FAERS Safety Report 5429479-3 (Version None)
Quarter: 2007Q3

REPORT INFORMATION
  Report Type: 
  Country: None (occurrence: None)
  Receive Date: 20070829
  Receipt Date: 20070824
  Transmission Date: 20080115
  Serious: Yes (Death, Life-Threatening)
  Sender: FDA-Public Use
  Company Number: B0480881A

PATIENT
  Age: 87 Year
  Sex: Male
  Weight: 43 kg

DRUGS (10)
  1. PAXIL [Suspect]
     Indication: PANIC DISORDER
     Dosage: 10MG PER DAY
     Route: 048
     Dates: start: 20070616, end: 20070617
  2. ARTIST [Concomitant]
     Route: 048
  3. GASTROM [Concomitant]
     Dosage: 3G PER DAY
     Route: 048
     Dates: end: 20070617
  4. LANSOPRAZOLE [Concomitant]
     Dosage: 15MG PER DAY
     Route: 048
     Dates: end: 20070617
  5. LAC B [Concomitant]
     Dosage: 3MG PER DAY
     Route: 048
     Dates: end: 20070617
  6. AMLODIPINE [Concomitant]
     Indication: HYPERTENSION
     Dosage: 2.5MG PER DAY
     Route: 048
     Dates: end: 20070617
  7. GLIMICRON [Concomitant]
     Indication: DIABETES MELLITUS
     Dosage: 40MG PER DAY
     Route: 048
     Dates: end: 20070617
  8. FUROSEMIDE [Concomitant]
     Dosage: 20MG PER DAY
     Route: 048
     Dates: end: 20070617
  9. ALDACTONE [Concomitant]
     Dosage: 25MG PER DAY
     Route: 048
     Dates: end: 20070617
  10. ASPIRIN [Concomitant]
     Indication: ATRIAL FIBRILLATION
     Dosage: 100MG PER DAY
     Route: 048
     Dates: end: 20070617

REACTIONS (6)
  - CHEST PAIN [None]
  - DYSSTASIA [None]
  - OVERDOSE [None]
  - RENAL FAILURE ACUTE [None]
  - RHABDOMYOLYSIS [None]
  - URINARY RETENTION [None]
